FAERS Safety Report 4927783-6 (Version None)
Quarter: 2006Q1

REPORT INFORMATION
  Report Type: 
  Country: None (occurrence: None)
  Receive Date: 20060228
  Receipt Date: 20051227
  Transmission Date: 20060701
  Serious: No
  Sender: FDA-Public Use
  Company Number: US-GLAXOSMITHKLINE-A0587050A

PATIENT
  Age: 70 Year
  Sex: Female

DRUGS (11)
  1. ZIAGEN [Suspect]
     Dosage: 300MG TWICE PER DAY
     Route: 048
     Dates: start: 20051225
  2. VIREAD [Concomitant]
     Dates: start: 20051201
  3. WELLBUTRIN [Concomitant]
  4. DEXAMPHETAMINE [Concomitant]
  5. FOSAMAX [Concomitant]
  6. KALETRA [Concomitant]
     Dates: start: 20051201
  7. CELEXA [Concomitant]
  8. MOBIC [Concomitant]
  9. PREVACID [Concomitant]
  10. RESTASIS [Concomitant]
  11. SYNTHROID [Concomitant]

REACTIONS (3)
  - DIZZINESS [None]
  - FATIGUE [None]
  - NAUSEA [None]
